FAERS Safety Report 4723639-2 (Version None)
Quarter: 2005Q3

REPORT INFORMATION
  Report Type: 
  Country: None (occurrence: None)
  Receive Date: 20050722
  Receipt Date: 20050713
  Transmission Date: 20060218
  Serious: Yes (Hospitalization)
  Sender: FDA-Public Use
  Company Number: CIO05011614

PATIENT
  Age: 81 Year
  Sex: Female

DRUGS (1)
  1. METAMUCIL-2 [Suspect]
     Dosage: 2 CAPSUL, 1 ONLY FOR 1 DAY, ORAL
     Route: 048
     Dates: start: 20050704, end: 20050704

REACTIONS (4)
  - ABDOMINAL PAIN UPPER [None]
  - EMOTIONAL DISTRESS [None]
  - NAUSEA [None]
  - VOMITING [None]
